FAERS Safety Report 18959774 (Version 1)
Quarter: 2021Q1

REPORT INFORMATION
  Report Type: Spontaneous
  Country: US (occurrence: US)
  Receive Date: 20210303
  Receipt Date: 20210303
  Transmission Date: 20210420
  Serious: No
  Sender: FDA-Public Use
  Company Number: US-AUROBINDO-AUR-APL-2020-056892

PATIENT
  Sex: Female

DRUGS (1)
  1. METFORMIN HYDROCHLORIDE TABLETS USP 850 MG [Suspect]
     Active Substance: METFORMIN HYDROCHLORIDE
     Indication: PRODUCT USED FOR UNKNOWN INDICATION
     Dosage: 850 MILLIGRAM, TWO TIMES A DAY
     Route: 065

REACTIONS (1)
  - Urinary incontinence [Unknown]
